FAERS Safety Report 15958431 (Version 3)
Quarter: 2019Q2

REPORT INFORMATION
  Report Type: Spontaneous
  Country: JP (occurrence: JP)
  Receive Date: 20190213
  Receipt Date: 20190419
  Transmission Date: 20190711
  Serious: Yes (Hospitalization)
  Sender: FDA-Public Use
  Company Number: PHJP2016JP035621

PATIENT
  Age: 71 Year
  Sex: Female
  Weight: 40 kg

DRUGS (2)
  1. NEORAL [Suspect]
     Active Substance: CYCLOSPORINE
     Indication: HYPEREOSINOPHILIC SYNDROME
  2. NEORAL [Suspect]
     Active Substance: CYCLOSPORINE
     Indication: URTICARIA CHRONIC
     Dosage: 100 MG, QD
     Route: 048
     Dates: start: 20150616, end: 20161125

REACTIONS (4)
  - Rhabdomyolysis [Recovered/Resolved]
  - Muscle disorder [Unknown]
  - Blood creatine phosphokinase increased [Unknown]
  - Product use in unapproved indication [Unknown]

NARRATIVE: CASE EVENT DATE: 20150616
